FAERS Safety Report 23922340 (Version 1)
Quarter: 2024Q2

REPORT INFORMATION
  Report Type: Spontaneous
  Country: FR (occurrence: FR)
  Receive Date: 20240531
  Receipt Date: 20240531
  Transmission Date: 20240716
  Serious: Yes (Hospitalization, Other)
  Sender: FDA-Public Use
  Company Number: FR-CELLTRION INC.-2024FR012555

PATIENT

DRUGS (7)
  1. RITUXIMAB [Suspect]
     Active Substance: RITUXIMAB
     Indication: Focal segmental glomerulosclerosis
     Dosage: 740 MG, QD
     Route: 042
     Dates: start: 20211120, end: 20211120
  2. LANSOPRAZOLE [Suspect]
     Active Substance: LANSOPRAZOLE
     Indication: Prophylaxis against gastrointestinal ulcer
     Dosage: 2 DF, QD
     Route: 048
     Dates: start: 20220625, end: 20220625
  3. LANSOPRAZOLE [Suspect]
     Active Substance: LANSOPRAZOLE
     Dosage: 1 DF, QD
     Route: 048
     Dates: start: 20220626, end: 20220626
  4. CELLCEPT [Suspect]
     Active Substance: MYCOPHENOLATE MOFETIL
     Indication: Prophylaxis against transplant rejection
     Dosage: 1000 MG, QD
     Route: 048
     Dates: start: 20170610, end: 20220625
  5. CELLCEPT [Suspect]
     Active Substance: MYCOPHENOLATE MOFETIL
     Dosage: 500 MG, QD
     Route: 048
     Dates: start: 20220626, end: 20220626
  6. NEORAL [Suspect]
     Active Substance: CYCLOSPORINE
     Indication: Prophylaxis against transplant rejection
     Dosage: 110 MG, QD
     Route: 048
     Dates: start: 20170610, end: 20220626
  7. NEORAL [Suspect]
     Active Substance: CYCLOSPORINE
     Dosage: 10 MG, QD
     Route: 048
     Dates: start: 20220627, end: 20220627

REACTIONS (2)
  - Agranulocytosis [Recovered/Resolved]
  - Intentional product use issue [Unknown]

NARRATIVE: CASE EVENT DATE: 20220626
